FAERS Safety Report 12840564 (Version 1)
Quarter: 2016Q4

REPORT INFORMATION
  Report Type: Spontaneous
  Country: US (occurrence: US)
  Receive Date: 20161012
  Receipt Date: 20161012
  Transmission Date: 20170207
  Serious: Yes (Other)
  Sender: FDA-Public Use
  Company Number: US-BAYER-2016-192077

PATIENT

DRUGS (1)
  1. ALEVE [Suspect]
     Active Substance: NAPROXEN SODIUM

REACTIONS (9)
  - Hypertension [Recovered/Resolved]
  - Mobility decreased [Unknown]
  - Headache [Unknown]
  - Joint swelling [Unknown]
  - Macular oedema [None]
  - Dyspnoea [Not Recovered/Not Resolved]
  - Malaise [Unknown]
  - Unevaluable event [None]
  - Asthenia [Unknown]
